FAERS Safety Report 17252821 (Version 1)
Quarter: 2019Q4

REPORT INFORMATION
  Report Type: Spontaneous
  Country: US (occurrence: US)
  Receive Date: 20191216
  Receipt Date: 20191216
  Transmission Date: 20200122
  Serious: Yes (Other)
  Sender: FDA-Public Use
  Company Number: None

PATIENT
  Age: 69 Year
  Sex: Female
  Weight: 99.79 kg

DRUGS (5)
  1. VITAMIN D3 [Concomitant]
     Active Substance: CHOLECALCIFEROL
  2. AVAPRO [Concomitant]
     Active Substance: IRBESARTAN
  3. ROSUVASTATIN. [Concomitant]
     Active Substance: ROSUVASTATIN
  4. IRBESARTAN 75 MG [Suspect]
     Active Substance: IRBESARTAN
     Indication: HYPERTENSION
     Dosage: ?          QUANTITY:75 MG MILLIGRAM(S);OTHER FREQUENCY:MORNING;?
     Route: 048
     Dates: start: 20191101, end: 20191120
  5. OMEPRAZOLE. [Concomitant]
     Active Substance: OMEPRAZOLE

REACTIONS (3)
  - Hypertension [None]
  - Heart rate increased [None]
  - Product substitution issue [None]
